FAERS Safety Report 4871656-4 (Version None)
Quarter: 2006Q1

REPORT INFORMATION
  Report Type: 
  Country: None (occurrence: None)
  Receive Date: 20060104
  Receipt Date: 20051027
  Transmission Date: 20060701
  Serious: Yes (Other)
  Sender: FDA-Public Use
  Company Number: JP-SOLVAY-00305003709

PATIENT
  Age: 33727 Day
  Sex: Male
  Weight: 43 kg

DRUGS (12)
  1. ZYLORIC [Concomitant]
     Indication: HYPERURICAEMIA
     Dosage: DAILY DOSE: 100 MILLIGRAM(S)
     Route: 048
     Dates: start: 20001201
  2. LUVOX [Suspect]
     Indication: DEPRESSION
     Dosage: DAILY DOSE: 50 MILLIGRAM(S)
     Route: 048
     Dates: start: 20050909, end: 20051026
  3. EUTENSIN [Concomitant]
     Indication: HYPERTENSION
     Dosage: DAILY DOSE: 40 MILLIGRAM(S)
     Route: 048
     Dates: start: 20001201
  4. COLONEL [Concomitant]
     Indication: IRRITABLE BOWEL SYNDROME
     Dosage: DAILY DOSE: 3.6 GRAM(S)
     Route: 048
     Dates: start: 20001201
  5. SELBEX [Concomitant]
     Indication: GASTRIC ULCER
     Dosage: DAILY DOSE: 1.5 GRAM(S)
     Route: 048
     Dates: start: 20001201
  6. MALFA [Concomitant]
     Indication: GASTRIC ULCER
     Dosage: DAILY DOSE: 30 MILLILITRE(S)
     Route: 048
     Dates: start: 20001201
  7. ALLEGRA [Concomitant]
     Indication: PRURITUS
     Dosage: DAILY DOSE:  UNKNOWN
     Route: 048
     Dates: start: 20050606
  8. HALCION [Concomitant]
     Indication: INSOMNIA
     Dosage: DAILY DOSE: .125 MILLIGRAM(S)
     Route: 048
     Dates: start: 20001201, end: 20050825
  9. LAXOBERON [Concomitant]
     Indication: CONSTIPATION
     Dosage: DAILY DOSE: 7.5 MILLIGRAM(S)
     Route: 048
     Dates: start: 20001201
  10. CONIEL [Concomitant]
     Indication: HYPERTENSION
     Dosage: DAILY DOSE: 4 MILLIGRAM(S)
     Route: 048
     Dates: start: 20001201, end: 20050825
  11. MYSLEE [Concomitant]
     Indication: INSOMNIA
     Dosage: DAILY DOSE: .5 DOSAGE FORM
     Route: 048
     Dates: start: 20050825, end: 20050908
  12. LENDORMIN [Concomitant]
     Indication: INSOMNIA
     Dosage: DAILY DOSE:  UNKNOWN
     Route: 048
     Dates: start: 20050913

REACTIONS (1)
  - HYPOTHERMIA [None]
